FAERS Safety Report 6132581-4 (Version None)
Quarter: 2009Q1

REPORT INFORMATION
  Report Type: 
  Country: None (occurrence: None)
  Receive Date: 20090324
  Receipt Date: 20090309
  Transmission Date: 20090719
  Serious: Yes (Death, Hospitalization)
  Sender: FDA-Public Use
  Company Number: 2009000733

PATIENT
  Age: 65 Year
  Sex: Male
  Weight: 54.2 kg

DRUGS (12)
  1. ERLOTINIB (ERLOTINIB) (TABLET) (ERLOTINIB) [Suspect]
     Indication: LUNG ADENOCARCINOMA
     Dosage: 150 MG, QD, ORAL
     Route: 048
     Dates: start: 20080826, end: 20090117
  2. FAMOTIDINE [Concomitant]
  3. BETAMETHASONE [Concomitant]
  4. MUCOSTA (REBAMIPIDE) [Concomitant]
  5. ZOLPIDEM [Concomitant]
  6. HOKUNALIN (TULOBUTEROL HYDROCHLORIDE) [Concomitant]
  7. MAXIPIME [Concomitant]
  8. VITAMEDIN [Concomitant]
  9. METOCLOPRAMIDE [Concomitant]
  10. PURSENNID (SENNA LEAF) [Concomitant]
  11. GLYCEROL 2.6% [Concomitant]
  12. AMANTADINE HCL [Concomitant]

REACTIONS (11)
  - ANOREXIA [None]
  - ARTERIOVENOUS FISTULA [None]
  - DERMATITIS ACNEIFORM [None]
  - DIZZINESS [None]
  - GASTRITIS ATROPHIC [None]
  - LUNG ADENOCARCINOMA [None]
  - MALIGNANT NEOPLASM PROGRESSION [None]
  - MELAENA [None]
  - PSEUDOMEMBRANOUS COLITIS [None]
  - SEBORRHOEIC DERMATITIS [None]
  - VARICES OESOPHAGEAL [None]
